FAERS Safety Report 5768002-0 (Version None)
Quarter: 2008Q2

REPORT INFORMATION
  Report Type: 
  Country: None (occurrence: None)
  Receive Date: 20080612
  Receipt Date: 20080602
  Transmission Date: 20081010
  Serious: Yes (Hospitalization)
  Sender: FDA-Public Use
  Company Number: AR-ABBOTT-08P-007-0453964-00

PATIENT
  Sex: Male
  Weight: 120 kg

DRUGS (6)
  1. HUMIRA [Suspect]
     Indication: PSORIATIC ARTHROPATHY
     Route: 058
     Dates: start: 20070818
  2. HUMIRA [Suspect]
     Indication: ERYTHRODERMIC PSORIASIS
  3. METHOTREXATE [Concomitant]
     Indication: PSORIATIC ARTHROPATHY
     Route: 030
     Dates: start: 20060801, end: 20080301
  4. METHOTREXATE [Concomitant]
     Indication: ERYTHRODERMIC PSORIASIS
  5. FOLIC ACID [Concomitant]
     Indication: VITAMIN SUPPLEMENTATION
     Route: 048
     Dates: start: 20060801
  6. DICLOFENAC [Concomitant]
     Indication: DRUG USE FOR UNKNOWN INDICATION
     Route: 048

REACTIONS (9)
  - ALANINE AMINOTRANSFERASE INCREASED [None]
  - ASPARTATE AMINOTRANSFERASE INCREASED [None]
  - BLOOD CREATINE PHOSPHOKINASE INCREASED [None]
  - DERMATOMYOSITIS [None]
  - MOBILITY DECREASED [None]
  - MUSCULAR WEAKNESS [None]
  - PELVIC PAIN [None]
  - RASH GENERALISED [None]
  - UNEVALUABLE EVENT [None]
